FAERS Safety Report 15882563 (Version 2)
Quarter: 2019Q3

REPORT INFORMATION
  Report Type: Spontaneous
  Country: FR (occurrence: FR)
  Receive Date: 20190129
  Receipt Date: 20190812
  Transmission Date: 20191004
  Serious: Yes (Hospitalization)
  Sender: FDA-Public Use
  Company Number: FR-TEVA-2019-FR-1003897

PATIENT
  Age: 44 Year
  Sex: Female
  Weight: 53 kg

DRUGS (2)
  1. TERALITHE [Suspect]
     Active Substance: LITHIUM CARBONATE
     Indication: TOXICITY TO VARIOUS AGENTS
     Route: 048
     Dates: start: 20181209
  2. ALPRAZOLAM. [Suspect]
     Active Substance: ALPRAZOLAM
     Indication: TOXICITY TO VARIOUS AGENTS
     Route: 048
     Dates: start: 20181209

REACTIONS (5)
  - Extrapyramidal disorder [Recovered/Resolved]
  - Gastrointestinal disorder [Recovered/Resolved]
  - Confusional state [Recovered/Resolved]
  - Vomiting [Recovered/Resolved]
  - Intentional overdose [Recovered/Resolved]

NARRATIVE: CASE EVENT DATE: 20181209
